FAERS Safety Report 7197140-3 (Version None)
Quarter: 2010Q4

REPORT INFORMATION
  Report Type: 
  Country: None (occurrence: None)
  Receive Date: 20101224
  Receipt Date: 20101214
  Transmission Date: 20110411
  Serious: Yes (Hospitalization, Other)
  Sender: FDA-Public Use
  Company Number: PHHY2010US76206

PATIENT
  Sex: Male

DRUGS (2)
  1. FANAPT [Suspect]
     Indication: SCHIZOPHRENIA
     Dosage: 6 MG, BID
     Route: 048
     Dates: start: 20100928, end: 20101026
  2. EFFEXOR XR [Concomitant]
     Indication: DEPRESSION
     Dosage: 75MG,
     Dates: start: 20080923

REACTIONS (3)
  - HALLUCINATION [None]
  - PRIAPISM [None]
  - SURGERY [None]
